FAERS Safety Report 17115965 (Version 3)
Quarter: 2019Q4

REPORT INFORMATION
  Report Type: Spontaneous
  Country: US (occurrence: US)
  Receive Date: 20191205
  Receipt Date: 20191223
  Transmission Date: 20200122
  Serious: No
  Sender: FDA-Public Use
  Company Number: US-PFIZER INC-2019524353

PATIENT
  Age: 72 Year

DRUGS (10)
  1. FROVATRIPTAN SUCCINATE. [Suspect]
     Active Substance: FROVATRIPTAN SUCCINATE
     Dosage: UNK
  2. RALOXIFENE. [Suspect]
     Active Substance: RALOXIFENE
     Dosage: UNK
  3. CODEINE [Suspect]
     Active Substance: CODEINE
     Dosage: UNK
  4. SULFAMETHOXAZOLE AND TRIMETHOPRIM [Suspect]
     Active Substance: SULFAMETHOXAZOLE\TRIMETHOPRIM
     Dosage: UNK
  5. COD LIVER OIL [Suspect]
     Active Substance: COD LIVER OIL
     Dosage: UNK
  6. EPINEPHRINE. [Suspect]
     Active Substance: EPINEPHRINE
     Dosage: UNK
  7. METAXALONE. [Suspect]
     Active Substance: METAXALONE
     Dosage: UNK
  8. PROCHLORPERAZINE EDISYLATE. [Suspect]
     Active Substance: PROCHLORPERAZINE EDISYLATE
  9. CIPROFLOXACIN. [Suspect]
     Active Substance: CIPROFLOXACIN
     Dosage: UNK
  10. ERYTHROMYCIN. [Suspect]
     Active Substance: ERYTHROMYCIN
     Dosage: UNK

REACTIONS (1)
  - Drug hypersensitivity [Unknown]
